FAERS Safety Report 7284414-0 (Version None)
Quarter: 2011Q1

REPORT INFORMATION
  Report Type: 
  Country: None (occurrence: None)
  Receive Date: 20110209
  Receipt Date: 20110131
  Transmission Date: 20110831
  Serious: Yes (Hospitalization, Other)
  Sender: FDA-Public Use
  Company Number: US-ABBOTT-11P-163-0701982-00

PATIENT
  Age: 57 Year
  Sex: Female

DRUGS (13)
  1. LASIX [Concomitant]
     Indication: OEDEMA
  2. PREDNISONE [Concomitant]
     Indication: RHEUMATOID ARTHRITIS
  3. SINGULAIR [Concomitant]
     Indication: HYPERSENSITIVITY
  4. LISINOPRIL [Concomitant]
     Indication: HYPERTENSION
  5. LIPITOR [Concomitant]
     Indication: BLOOD CHOLESTEROL INCREASED
  6. HUMIRA [Suspect]
     Indication: RHEUMATOID ARTHRITIS
     Dates: start: 20080101, end: 20101101
  7. LEVOTHROID [Concomitant]
     Indication: HYPOTHYROIDISM
  8. OMEPRAZOLE [Concomitant]
     Indication: GASTROOESOPHAGEAL REFLUX DISEASE
  9. KLOR-CON [Concomitant]
     Indication: MINERAL SUPPLEMENTATION
  10. PEPCID OTC [Concomitant]
     Indication: GASTROOESOPHAGEAL REFLUX DISEASE
  11. PRILOSEC [Concomitant]
     Indication: GASTROOESOPHAGEAL REFLUX DISEASE
  12. LEFLUNOMIDE [Concomitant]
     Indication: RHEUMATOID ARTHRITIS
  13. SPIRONOLACTONE [Concomitant]
     Indication: FLUID RETENTION

REACTIONS (2)
  - ARRHYTHMIA [None]
  - CORONARY ARTERY OCCLUSION [None]
